FAERS Safety Report 7296269-9 (Version None)
Quarter: 2011Q1

REPORT INFORMATION
  Report Type: 
  Country: None (occurrence: None)
  Receive Date: 20110211
  Receipt Date: 20110211
  Transmission Date: 20110831
  Serious: No
  Sender: FDA-Public Use
  Company Number: None

PATIENT
  Age: 49 Year
  Sex: Male
  Weight: 102.5129 kg

DRUGS (1)
  1. GLIPIZIDE [Suspect]
     Indication: TYPE 2 DIABETES MELLITUS
     Dates: start: 20110101, end: 20110201

REACTIONS (4)
  - ASTHENIA [None]
  - HAEMATOCHEZIA [None]
  - DIZZINESS [None]
  - MEDICATION RESIDUE [None]
